FAERS Safety Report 13608294 (Version 1)
Quarter: 2017Q2

REPORT INFORMATION
  Report Type: Spontaneous
  Country: US (occurrence: US)
  Receive Date: 20170602
  Receipt Date: 20170602
  Transmission Date: 20170830
  Serious: No
  Sender: FDA-Public Use
  Company Number: US-PERRIGO-16US021841

PATIENT
  Sex: Male

DRUGS (2)
  1. PERMETHRIN. [Suspect]
     Active Substance: PERMETHRIN
     Dosage: 1 APPLICATION, TO SPOTS OF ITCHING, PRN
     Route: 061
     Dates: start: 201611
  2. PERMETHRIN. [Suspect]
     Active Substance: PERMETHRIN
     Indication: ACARODERMATITIS
     Dosage: 1 APPLICATION, TO BODY FROM NECK DOWN, SINGLE
     Route: 061
     Dates: start: 20161112, end: 20161112

REACTIONS (1)
  - Wrong technique in product usage process [Unknown]

NARRATIVE: CASE EVENT DATE: 201611
